FAERS Safety Report 11918659 (Version 1)
Quarter: 2016Q1

REPORT INFORMATION
  Report Type: Not Available
  Country: FR (occurrence: FR)
  Receive Date: 20160115
  Receipt Date: 20160115
  Transmission Date: 20160526
  Serious: Yes (Other)
  Sender: FDA-Public Use
  Company Number: FR-BEH-2012032836

PATIENT
  Sex: Male

DRUGS (4)
  1. HIZENTRA [Suspect]
     Active Substance: HUMAN IMMUNOGLOBULIN G
     Indication: PRIMARY IMMUNODEFICIENCY SYNDROME
     Dosage: 200 MG/ML
     Route: 058
     Dates: start: 20120322
  2. HIZENTRA [Suspect]
     Active Substance: HUMAN IMMUNOGLOBULIN G
     Dosage: DECREASED TO 6G EVERY 15 DAYS BEFORE CLINICAL IMPROVEMENT OF THE CVID
     Dates: start: 20151210
  3. HIZENTRA [Suspect]
     Active Substance: HUMAN IMMUNOGLOBULIN G
     Dosage: 2G X 1
  4. HIZENTRA [Suspect]
     Active Substance: HUMAN IMMUNOGLOBULIN G
     Dosage: 4G X 1

REACTIONS (11)
  - Dyspnoea [Not Recovered/Not Resolved]
  - Dermatitis bullous [Recovered/Resolved with Sequelae]
  - Chest discomfort [Not Recovered/Not Resolved]
  - Pain [Unknown]
  - Hypersensitivity [Not Recovered/Not Resolved]
  - Dyspnoea [Not Recovered/Not Resolved]
  - Scar [Recovered/Resolved with Sequelae]
  - Skin reaction [Recovered/Resolved with Sequelae]
  - Chest discomfort [Not Recovered/Not Resolved]
  - Skin depigmentation [Recovered/Resolved with Sequelae]
  - Skin lesion [Recovered/Resolved with Sequelae]

NARRATIVE: CASE EVENT DATE: 2012
